FAERS Safety Report 23614513 (Version 2)
Quarter: 2024Q2

REPORT INFORMATION
  Report Type: Spontaneous
  Country: US (occurrence: US)
  Receive Date: 20240311
  Receipt Date: 20240409
  Transmission Date: 20240716
  Serious: Yes (Hospitalization, Other)
  Sender: FDA-Public Use
  Company Number: US-SA-SAC20240308000367

PATIENT
  Sex: Male

DRUGS (3)
  1. KEVZARA [Suspect]
     Active Substance: SARILUMAB
     Indication: Polymyalgia rheumatica
     Dosage: 200 MG, QOW
     Route: 058
  2. KEVZARA [Suspect]
     Active Substance: SARILUMAB
     Indication: Giant cell arteritis
  3. AMOXICILLIN [Concomitant]
     Active Substance: AMOXICILLIN
     Dosage: 875 MG, BID

REACTIONS (4)
  - Pneumonia [Unknown]
  - Urinary tract infection [Unknown]
  - Product use in unapproved indication [Unknown]
  - Intentional dose omission [Unknown]
